FAERS Safety Report 16945008 (Version 2)
Quarter: 2020Q1

REPORT INFORMATION
  Report Type: Spontaneous
  Country: US (occurrence: US)
  Receive Date: 20191022
  Receipt Date: 20200122
  Transmission Date: 20200409
  Serious: No
  Sender: FDA-Public Use
  Company Number: US-SUN PHARMACEUTICAL INDUSTRIES LTD-2019R1-219746

PATIENT
  Sex: Female

DRUGS (6)
  1. NEOMYCIN-POLYMYXIN-HYDROCORTISONE [Concomitant]
     Indication: EAR INFECTION
     Dosage: UNK,GTT
     Route: 065
     Dates: start: 20190723, end: 20190729
  2. CIPROFLOXACIN. [Concomitant]
     Active Substance: CIPROFLOXACIN
     Indication: EAR INFECTION
     Dosage: UNK,GTT
     Route: 065
     Dates: start: 20190730
  3. AMBRISENTAN [Suspect]
     Active Substance: AMBRISENTAN
     Indication: PULMONARY HYPERTENSION
     Dosage: 10 MILLIGRAM, QD
     Route: 065
     Dates: start: 20191119
  4. TADALAFIL. [Suspect]
     Active Substance: TADALAFIL
     Indication: PULMONARY HYPERTENSION
     Dosage: 20 MILLIGRAM, QD
     Route: 065
     Dates: start: 2019, end: 20190726
  5. AMOXICILLIN-CLAVULANIC ACID [Concomitant]
     Active Substance: AMOXICILLIN\CLAVULANIC ACID
     Indication: EAR INFECTION
     Dosage: UNK UNK, BID
     Route: 065
     Dates: start: 20190723, end: 20190729
  6. CEFDINIR. [Concomitant]
     Active Substance: CEFDINIR
     Indication: EAR INFECTION
     Dosage: 300 MILLIGRAM, BID
     Route: 065
     Dates: start: 20190730

REACTIONS (6)
  - Nasal congestion [Not Recovered/Not Resolved]
  - Upper respiratory tract congestion [Unknown]
  - Hypoacusis [Unknown]
  - Sinus congestion [Recovering/Resolving]
  - Oedema [Unknown]
  - Ear infection [Not Recovered/Not Resolved]

NARRATIVE: CASE EVENT DATE: 2019
